FAERS Safety Report 24790837 (Version 1)
Quarter: 2024Q4

REPORT INFORMATION
  Report Type: Spontaneous
  Country: CA (occurrence: CA)
  Receive Date: 20241230
  Receipt Date: 20241230
  Transmission Date: 20250115
  Serious: Yes (Hospitalization, Other)
  Sender: DAITO PHARMACEUTICALS
  Company Number: CA-Daito Pharmaceutical Co., Ltd.-2168056

PATIENT
  Age: 40 Year
  Sex: Male

DRUGS (2)
  1. METHOTREXATE SODIUM [Suspect]
     Active Substance: METHOTREXATE SODIUM
     Indication: Cardiac sarcoidosis
  2. PREDNISONE [Suspect]
     Active Substance: PREDNISONE

REACTIONS (1)
  - Ventricular tachycardia [Recovered/Resolved]
